FAERS Safety Report 24420299 (Version 2)
Quarter: 2024Q4

REPORT INFORMATION
  Report Type: Spontaneous
  Country: FR (occurrence: FR)
  Receive Date: 20241010
  Receipt Date: 20241018
  Transmission Date: 20250115
  Serious: No
  Sender: ROCHE
  Company Number: None

PATIENT
  Age: 76 Year
  Sex: Male
  Weight: 77.0 kg

DRUGS (8)
  1. ALTEPLASE [Suspect]
     Active Substance: ALTEPLASE
     Indication: Cerebrovascular accident
     Route: 042
     Dates: start: 20240106, end: 20240106
  2. ALTEPLASE [Suspect]
     Active Substance: ALTEPLASE
     Route: 042
     Dates: start: 20240106, end: 20240106
  3. CLOPIDOGREL [Concomitant]
     Active Substance: CLOPIDOGREL BISULFATE
     Indication: Coronary artery disease
     Route: 048
  4. JARDIANCE [Concomitant]
     Active Substance: EMPAGLIFLOZIN
     Indication: Type 2 diabetes mellitus
     Route: 048
  5. AMLODIPINE [Concomitant]
     Active Substance: AMLODIPINE BESYLATE
     Indication: Hypertension
     Route: 048
  6. OFEV [Concomitant]
     Active Substance: NINTEDANIB
     Indication: Product used for unknown indication
     Route: 048
  7. VALSARTAN [Concomitant]
     Active Substance: VALSARTAN
     Indication: Hypertension
     Route: 048
  8. ROSUVASTATIN [Concomitant]
     Active Substance: ROSUVASTATIN
     Indication: Cardiovascular event prophylaxis
     Route: 048

REACTIONS (1)
  - Hypofibrinogenaemia [Recovering/Resolving]

NARRATIVE: CASE EVENT DATE: 20240106
